FAERS Safety Report 8414962-9 (Version None)
Quarter: 2012Q2

REPORT INFORMATION
  Report Type: 
  Country: None (occurrence: None)
  Receive Date: 20120601
  Receipt Date: 20120601
  Transmission Date: 20120825
  Serious: Yes (Other)
  Sender: FDA-Public Use
  Company Number: None

PATIENT
  Age: 62 Year
  Sex: Male
  Weight: 147.7 kg

DRUGS (2)
  1. CUBICIN [Suspect]
     Indication: STAPHYLOCOCCAL BACTERAEMIA
     Dosage: 866 MG IV
     Route: 042
     Dates: start: 20120408, end: 20120427
  2. CUBICIN [Suspect]
     Indication: LOCALISED INFECTION
     Dosage: 866 MG IV
     Route: 042
     Dates: start: 20120408, end: 20120427

REACTIONS (1)
  - PNEUMONIA [None]
